FAERS Safety Report 14915404 (Version 1)
Quarter: 2018Q2

REPORT INFORMATION
  Report Type: Spontaneous
  Country: MX (occurrence: MX)
  Receive Date: 20180518
  Receipt Date: 20180518
  Transmission Date: 20180711
  Serious: Yes (Other)
  Sender: FDA-Public Use
  Company Number: MX-BAUSCH-BL-2018-013792

PATIENT
  Age: 59 Year
  Sex: Male

DRUGS (6)
  1. ALBUTEROL SULFATE. [Suspect]
     Active Substance: ALBUTEROL SULFATE
     Dosage: PATIENT RECEIVED FIVE DOSES OF NEBULIZED ALBUTEROL THROUGH A MOUTHPIECE (TOTAL DOSE OF 32.5 MG)
     Route: 065
  2. IPRATROPIUM BROMIDE. [Suspect]
     Active Substance: IPRATROPIUM BROMIDE
     Dosage: NEBULIZED IPRATROPIUM BROMIDE (0.5 MG EVERY 4 HOURS)
     Route: 065
  3. HYDROCORTISONE. [Suspect]
     Active Substance: HYDROCORTISONE
     Indication: ASTHMA
     Route: 042
  4. IPRATROPIUM BROMIDE. [Suspect]
     Active Substance: IPRATROPIUM BROMIDE
     Indication: ASTHMA
     Dosage: THREE OR FOUR PUFFS OF IPRATROPIUM BROMIDE PER DAY
     Route: 065
  5. ALBUTEROL SULFATE. [Suspect]
     Active Substance: ALBUTEROL SULFATE
     Indication: ASTHMA
     Dosage: THREE OR FOUR PUFFS OF ALBUTEROL SULFATE PER DAY
     Route: 065
  6. IPRATROPIUM BROMIDE. [Suspect]
     Active Substance: IPRATROPIUM BROMIDE
     Route: 065

REACTIONS (4)
  - Atrial fibrillation [Recovered/Resolved]
  - Lactic acidosis [Recovered/Resolved]
  - Sinus tachycardia [Recovered/Resolved]
  - Drug ineffective [Not Recovered/Not Resolved]
